FAERS Safety Report 7979708-7 (Version None)
Quarter: 2011Q4

REPORT INFORMATION
  Report Type: 
  Country: None (occurrence: None)
  Receive Date: 20111214
  Receipt Date: 20111207
  Transmission Date: 20120403
  Serious: Yes (Hospitalization, Other)
  Sender: FDA-Public Use
  Company Number: CA-ROCHE-1020055

PATIENT
  Sex: Female

DRUGS (19)
  1. XOLAIR [Suspect]
     Dosage: FREQUENCY: BIW
     Dates: start: 20110308
  2. SINGULAIR [Concomitant]
  3. AMITRIPTYLINE HCL [Concomitant]
  4. ADVAIR DISKUS 100/50 [Concomitant]
  5. FLUTICASONE PROPIONATE [Concomitant]
  6. DESYREL [Concomitant]
  7. ZOPICLONE [Concomitant]
  8. PREMARIN [Concomitant]
  9. PREVACID [Concomitant]
  10. NOVO-CYCLOPRINE [Concomitant]
  11. PERINDOPRIL ERBUMINE [Concomitant]
  12. ADVENTAN [Concomitant]
  13. FLUTICASONE PROPIONATE [Concomitant]
  14. OXYCONTIN [Concomitant]
  15. INFLUENZA VACCINE [Concomitant]
  16. TOPIRAMATE [Concomitant]
  17. XOLAIR [Suspect]
     Indication: ASTHMA
     Dosage: FREQUENCY: BIW
     Route: 058
     Dates: start: 20101220
  18. TOPIRAMATE [Concomitant]
  19. OXYCODONE HCL AND ACETAMINOPHEN [Concomitant]

REACTIONS (15)
  - LYMPHADENOPATHY [None]
  - HEART RATE INCREASED [None]
  - LUNG INFECTION [None]
  - BLOOD PRESSURE INCREASED [None]
  - PAIN [None]
  - PNEUMONIA [None]
  - COUGH [None]
  - LOWER RESPIRATORY TRACT INFECTION [None]
  - HEADACHE [None]
  - NAUSEA [None]
  - ASTHENIA [None]
  - DIABETES MELLITUS [None]
  - INJECTION SITE ERYTHEMA [None]
  - SPUTUM DISCOLOURED [None]
  - FEELING ABNORMAL [None]
